FAERS Safety Report 24794468 (Version 3)
Quarter: 2025Q1

REPORT INFORMATION
  Report Type: Spontaneous
  Country: US (occurrence: US)
  Receive Date: 20241231
  Receipt Date: 20250219
  Transmission Date: 20250408
  Serious: Yes (Hospitalization)
  Sender: PFIZER
  Company Number: US-PFIZER INC-202400332667

PATIENT
  Age: 70 Year
  Sex: Male
  Weight: 67 kg

DRUGS (9)
  1. CARBOPLATIN [Suspect]
     Active Substance: CARBOPLATIN
     Indication: Lung neoplasm malignant
     Dates: start: 202302, end: 202303
  2. CARBOPLATIN [Suspect]
     Active Substance: CARBOPLATIN
     Dosage: 522 MG, EVERY 3 WEEKS
     Route: 042
  3. PEMETREXED [Suspect]
     Active Substance: PEMETREXED
     Indication: Lung neoplasm malignant
     Dates: start: 202302, end: 202303
  4. PEMETREXED [Suspect]
     Active Substance: PEMETREXED
     Dosage: 500 MG/M2, EVERY 3 WEEKS
     Route: 042
  5. PEMBROLIZUMAB [Suspect]
     Active Substance: PEMBROLIZUMAB
     Indication: Lung neoplasm malignant
     Dates: start: 202302, end: 202303
  6. PEMBROLIZUMAB [Suspect]
     Active Substance: PEMBROLIZUMAB
     Dosage: 200 MG, EVERY 3 WEEKS
     Route: 042
  7. FOLIC ACID [Concomitant]
     Active Substance: FOLIC ACID
  8. PEMETREXED [Concomitant]
     Active Substance: PEMETREXED
     Dosage: 1 MG, DAILY
  9. METOPROLOL SUCCINATE [Concomitant]
     Active Substance: METOPROLOL SUCCINATE
     Indication: Cardiac disorder
     Dosage: 100 MG, DAILY

REACTIONS (5)
  - Rash [Recovered/Resolved]
  - Bacterial infection [Recovered/Resolved]
  - Ocular hyperaemia [Unknown]
  - Neoplasm progression [Unknown]
  - Off label use [Unknown]

NARRATIVE: CASE EVENT DATE: 20230101
